FAERS Safety Report 5803942-5 (Version None)
Quarter: 2008Q3

REPORT INFORMATION
  Report Type: 
  Country: None (occurrence: None)
  Receive Date: 20080708
  Receipt Date: 20080626
  Transmission Date: 20090109
  Serious: Yes (Death, Life-Threatening, Hospitalization)
  Sender: FDA-Public Use
  Company Number: FR-PFIZER INC-2008054365

PATIENT
  Sex: Male

DRUGS (13)
  1. SOLU-MEDROL [Suspect]
     Route: 042
     Dates: start: 20060926, end: 20060928
  2. LYSANXIA [Suspect]
     Indication: ANXIETY
     Route: 048
  3. PREVISCAN [Suspect]
     Route: 048
  4. TAXOTERE [Suspect]
     Route: 042
     Dates: start: 20060926, end: 20060926
  5. CISPLATIN [Suspect]
     Route: 042
     Dates: start: 20060926, end: 20060928
  6. ZOPHREN [Suspect]
     Route: 042
  7. GAVISCON [Suspect]
     Route: 048
  8. NEXIUM [Suspect]
     Route: 048
  9. AMITRIPTYLINE HYDROCHLORIDE [Suspect]
     Route: 048
  10. KETOPROFEN [Suspect]
     Route: 048
     Dates: start: 20060930, end: 20060930
  11. OXYCONTIN [Suspect]
     Route: 048
  12. DOMPERIDONE [Suspect]
     Route: 048
  13. LOPERAMIDE HCL [Suspect]
     Route: 048

REACTIONS (2)
  - ANAEMIA [None]
  - HAEMORRHAGE [None]
